FAERS Safety Report 8874965 (Version 2)
Quarter: 2012Q4

REPORT INFORMATION
  Report Type: 
  Country: DE (occurrence: DE)
  Receive Date: 20121023
  Receipt Date: 20121120
  Transmission Date: 20130627
  Serious: Yes (Hospitalization)
  Sender: FDA-Public Use
  Company Number: DE-ROCHE-1147078

PATIENT
  Sex: Female
  Weight: 110 kg

DRUGS (7)
  1. ACTILYSE [Suspect]
     Indication: CEREBRAL INFARCTION
     Route: 065
     Dates: start: 20121007, end: 20121007
  2. HAES [Concomitant]
     Route: 042
     Dates: start: 20121107, end: 20121107
  3. RINGER SOLUTION [Concomitant]
     Route: 042
     Dates: start: 20121107
  4. PANTAZOL [Concomitant]
     Route: 042
  5. MCP [Concomitant]
     Dosage: 1 Ampoule
     Route: 042
     Dates: start: 20121107
  6. ATROPINE [Concomitant]
     Route: 042
     Dates: start: 20121007
  7. RT-PA [Concomitant]
     Route: 065
     Dates: start: 20121107

REACTIONS (9)
  - Haematoma [Recovered/Resolved]
  - Disseminated intravascular coagulation [Recovered/Resolved]
  - Hypotension [Recovered/Resolved]
  - Bradycardia [Recovered/Resolved]
  - Somnolence [Recovered/Resolved]
  - Vomiting [Recovered/Resolved]
  - Activated partial thromboplastin time prolonged [Recovered/Resolved]
  - Blood fibrinogen decreased [Recovered/Resolved]
  - Haemoglobin decreased [Recovered/Resolved]
